FAERS Safety Report 9467344 (Version 4)
Quarter: 2014Q2

REPORT INFORMATION
  Report Type: Report from Study
  Country: CA (occurrence: CA)
  Receive Date: 20130821
  Receipt Date: 20140507
  Transmission Date: 20141212
  Serious: Yes (Other)
  Sender: FDA-Public Use
  Company Number: CA-ROCHE-1263120

PATIENT
  Age: 63 Year
  Sex: Female
  Weight: 44 kg

DRUGS (12)
  1. RITUXAN [Suspect]
     Indication: RHEUMATOID ARTHRITIS
     Dosage: FREQUENCY:  DAY 1 AND DAY 15 LATEST INFUSION ON 14/NOV/2013
     Route: 042
     Dates: start: 20061124
  2. RITUXAN [Suspect]
     Indication: CREST SYNDROME
     Dosage: FREQUENCY:  DAY 1 AND DAY 15
     Route: 042
     Dates: start: 20090903
  3. RITUXAN [Suspect]
     Dosage: FREQUENCY:  DAY 1 AND DAY 15, PREVIOUS RITUXIMAB DOSE ON 28/DEC/2012
     Route: 042
     Dates: start: 20121214
  4. FOLIC ACID [Concomitant]
  5. PREDNISONE [Concomitant]
     Indication: PREMEDICATION
     Route: 048
     Dates: start: 20110907, end: 20110920
  6. DIPHENHYDRAMINE HCL [Concomitant]
     Indication: PREMEDICATION
     Route: 048
     Dates: start: 20090903
  7. ACETAMINOPHEN [Concomitant]
     Indication: PREMEDICATION
     Route: 048
     Dates: start: 20090903
  8. SOLU-CORTEF INJECTABLE [Concomitant]
     Indication: PREMEDICATION
     Route: 042
     Dates: start: 20120419
  9. PAXIL [Concomitant]
  10. PANTOPRAZOLE [Concomitant]
  11. TUMS [Concomitant]
  12. ECTOSONE [Concomitant]

REACTIONS (16)
  - Joint injury [Unknown]
  - Trigger finger [Not Recovered/Not Resolved]
  - Rheumatoid arthritis [Unknown]
  - Ear pruritus [Recovered/Resolved]
  - Throat irritation [Recovered/Resolved]
  - Oropharyngeal pain [Recovered/Resolved]
  - Respiratory tract congestion [Unknown]
  - Headache [Recovered/Resolved]
  - Ear pain [Recovered/Resolved]
  - Pyrexia [Recovered/Resolved]
  - Abdominal pain upper [Recovered/Resolved]
  - Nausea [Recovered/Resolved]
  - Pain [Recovered/Resolved]
  - Diarrhoea [Recovered/Resolved]
  - Influenza [Unknown]
  - Off label use [Unknown]
